FAERS Safety Report 15265035 (Version 1)
Quarter: 2018Q3

REPORT INFORMATION
  Report Type: Spontaneous
  Country: US (occurrence: US)
  Receive Date: 20180810
  Receipt Date: 20180810
  Transmission Date: 20181010
  Serious: No
  Sender: FDA-Public Use
  Company Number: US-PFIZER INC-2017045419

PATIENT
  Age: 4 Year
  Sex: Male

DRUGS (3)
  1. GENOTROPIN [Suspect]
     Active Substance: SOMATROPIN
     Indication: GROWTH HORMONE DEFICIENCY
     Dosage: 5 MG, UNK
  2. GENOTROPIN [Suspect]
     Active Substance: SOMATROPIN
     Dosage: 0.7 MG, DAILY
     Dates: start: 20150220
  3. GENOTROPIN [Suspect]
     Active Substance: SOMATROPIN
     Dosage: 0.7 MG, DAILY [EVERY DAY/EVERY NIGHT AT 9 PM]
     Dates: start: 201412

REACTIONS (12)
  - White blood cell count increased [Unknown]
  - Neutrophil count increased [Unknown]
  - Haemoglobin increased [Unknown]
  - Vitamin D decreased [Unknown]
  - Blood sodium decreased [Unknown]
  - Carbon dioxide abnormal [Unknown]
  - Platelet count increased [Unknown]
  - Intentional product misuse [Unknown]
  - Lymphocyte count decreased [Unknown]
  - Insulin-like growth factor decreased [Unknown]
  - Alanine aminotransferase decreased [Unknown]
  - Drug dose omission [Unknown]
